FAERS Safety Report 6896476-0 (Version None)
Quarter: 2010Q3

REPORT INFORMATION
  Report Type: 
  Country: None (occurrence: None)
  Receive Date: 20100802
  Receipt Date: 20100723
  Transmission Date: 20110219
  Serious: Yes (Hospitalization)
  Sender: FDA-Public Use
  Company Number: US-AMGEN-KDL424251

PATIENT
  Sex: Female
  Weight: 57.7 kg

DRUGS (24)
  1. ENBREL [Suspect]
     Indication: RHEUMATOID ARTHRITIS
     Route: 058
     Dates: start: 20011012
  2. PRAVACHOL [Concomitant]
  3. AVAPRO [Concomitant]
  4. NORVASC [Concomitant]
  5. OMEPRAZOLE [Concomitant]
  6. ASPIRIN [Concomitant]
  7. TYLENOL [Concomitant]
  8. ASCORBIC ACID [Concomitant]
  9. CALTRATE [Concomitant]
  10. MULTI-VITAMINS [Concomitant]
  11. TRAMADOL HYDROCHLORIDE [Concomitant]
  12. TRAMAZOLINE [Concomitant]
  13. SARNA HC [Concomitant]
     Route: 061
  14. NITROSTAT [Concomitant]
     Route: 060
  15. MIRTAZAPINE [Concomitant]
  16. BENADRYL [Concomitant]
  17. FLONASE [Concomitant]
  18. ALISKIREN [Concomitant]
  19. TOPROL-XL [Concomitant]
  20. SINGULAIR [Concomitant]
  21. TRAVATAN [Concomitant]
     Route: 047
  22. FEXOFENADINE [Concomitant]
  23. REFRESH [Concomitant]
     Route: 047
  24. FLUTICASONE [Concomitant]

REACTIONS (4)
  - ARTERIAL STENT INSERTION [None]
  - CORONARY ARTERIAL STENT INSERTION [None]
  - PAIN IN EXTREMITY [None]
  - VASCULAR INSUFFICIENCY [None]
